FAERS Safety Report 22094664 (Version 2)
Quarter: 2023Q2

REPORT INFORMATION
  Report Type: Spontaneous
  Country: KR (occurrence: KR)
  Receive Date: 20230314
  Receipt Date: 20230406
  Transmission Date: 20230722
  Serious: Yes (Hospitalization)
  Sender: FDA-Public Use
  Company Number: KR-UNITED THERAPEUTICS-UNT-2023-004880

PATIENT
  Age: 56 Year
  Sex: Female
  Weight: 50.8 kg

DRUGS (3)
  1. REMODULIN [Suspect]
     Active Substance: TREPROSTINIL
     Indication: Pulmonary arterial hypertension
     Dosage: 0.036 ?G/KG, CONTINUING
     Route: 058
  2. REMODULIN [Suspect]
     Active Substance: TREPROSTINIL
     Dosage: 0.040 ?G/KG, CONTINUING
     Route: 058
     Dates: start: 20230307
  3. REMODULIN [Suspect]
     Active Substance: TREPROSTINIL
     Dosage: UNK, CONTINUING
     Route: 058
     Dates: start: 20221202

REACTIONS (3)
  - Abdominal pain upper [Recovered/Resolved]
  - Influenza [Recovered/Resolved]
  - Cardiac discomfort [Recovered/Resolved]

NARRATIVE: CASE EVENT DATE: 20230210
